FAERS Safety Report 5510856-7 (Version None)
Quarter: 2007Q4

REPORT INFORMATION
  Report Type: 
  Country: None (occurrence: None)
  Receive Date: 20071107
  Receipt Date: 20071031
  Transmission Date: 20080405
  Serious: Yes (Life-Threatening)
  Sender: FDA-Public Use
  Company Number: 2007S1000199

PATIENT
  Age: 65 Year
  Sex: Male
  Weight: 100.6 kg

DRUGS (12)
  1. INOMAX [Suspect]
     Indication: VENTRICULAR ASSIST DEVICE INSERTION
     Dosage: 40 PPM; CONT; INH
     Route: 055
     Dates: start: 20071026, end: 20071028
  2. DOPAMINE HCL [Concomitant]
  3. EPINEPHRINE [Concomitant]
  4. FENTANYL [Concomitant]
  5. MIDAZOLAM HCL [Concomitant]
  6. PROPOFOL [Concomitant]
  7. VASOPRESSIN INJECTION [Concomitant]
  8. INSULIN [Concomitant]
  9. CALCIUM CHLORIDE ^SIOTIKA^ [Concomitant]
  10. VANCOMYCIN [Concomitant]
  11. CEFUROXIME [Concomitant]
  12. INOMAX [Concomitant]

REACTIONS (2)
  - BLOOD COUNT ABNORMAL [None]
  - POST PROCEDURAL HAEMORRHAGE [None]
